FAERS Safety Report 13101232 (Version 1)
Quarter: 2017Q1

REPORT INFORMATION
  Report Type: Spontaneous
  Country: US (occurrence: US)
  Receive Date: 20170110
  Receipt Date: 20170110
  Transmission Date: 20170428
  Serious: No
  Sender: FDA-Public Use
  Company Number: US-B.I. PHARMACEUTICALS,INC./RIDGEFIELD-2017-BI-000851

PATIENT
  Sex: Female

DRUGS (16)
  1. ZOLOFT [Concomitant]
     Active Substance: SERTRALINE HYDROCHLORIDE
     Indication: DEPRESSION
     Dosage: 2 TABS DAILY;  FORM STRENGTH: 100MG; FORMULATION: TABLET
     Route: 048
  2. METFORMIN [Concomitant]
     Active Substance: METFORMIN HYDROCHLORIDE
     Indication: DIABETES MELLITUS
     Dosage: 1 TAB BID;  FORM STRENGTH: 500MG; FORMULATION: TABLET
     Route: 048
  3. CYCLOBENZAPRINE HCL [Concomitant]
     Active Substance: CYCLOBENZAPRINE HYDROCHLORIDE
     Indication: MUSCLE SPASMS
     Dosage: 1-3 TABS AS NEEDED;  FORM STRENGTH: 10 MG; FORMULATION: TABLET
     Route: 048
  4. ISOSORBIDE MONONITRATE. [Concomitant]
     Active Substance: ISOSORBIDE MONONITRATE
     Indication: ANGINA PECTORIS
     Dosage: 1.5  TAB DAILY;  FORM STRENGTH: 60MG; FORMULATION: TABLET
     Route: 048
  5. PRILOSEC [Concomitant]
     Active Substance: OMEPRAZOLE MAGNESIUM
     Indication: GASTROOESOPHAGEAL REFLUX DISEASE
     Dosage: 1 CAP BID;  FORMULATION: CAPLET;
     Route: 048
  6. LORAZEPAM. [Concomitant]
     Active Substance: LORAZEPAM
     Indication: ANXIETY
     Dosage: 1 TAB DAILY;  FORM STRENGTH: 1 MG; FORMULATION: TABLET
     Route: 048
  7. LOSARTAN. [Concomitant]
     Active Substance: LOSARTAN
     Indication: HYPERTENSION
     Dosage: 1 TAB DAILY;  FORM STRENGTH: 50MG; FORMULATION: TABLET
     Route: 048
  8. ATENOLOL. [Concomitant]
     Active Substance: ATENOLOL
     Indication: HYPERTENSION
     Dosage: 1 TAB DAILY;  FORM STRENGTH: 50MG; FORMULATION: TABLET
     Route: 048
  9. SPIRIVA [Suspect]
     Active Substance: TIOTROPIUM BROMIDE MONOHYDRATE
     Indication: CHRONIC OBSTRUCTIVE PULMONARY DISEASE
     Route: 055
     Dates: start: 2015, end: 2016
  10. FUROSEMIDE. [Concomitant]
     Active Substance: FUROSEMIDE
     Indication: FLUID RETENTION
     Dosage: 1 TAB DAILY;  FORM STRENGTH: 40MG; FORMULATION: TABLET
     Route: 048
  11. COPAXONE [Concomitant]
     Active Substance: GLATIRAMER ACETATE
     Indication: MULTIPLE SCLEROSIS
     Dosage: 1 INJECTION THREE TIMES A WEEK;  FORMULATION: SUBCUTANEOUS;
     Route: 058
  12. FOSAMAX [Concomitant]
     Active Substance: ALENDRONATE SODIUM
     Indication: OSTEOPOROSIS
     Dosage: 1 TAB WEEKLY;  FORMULATION: TABLET;
     Route: 048
  13. PRAMIPEXOLE. [Concomitant]
     Active Substance: PRAMIPEXOLE
     Indication: MUSCLE SPASMS
     Dosage: 1 TAB DAILY;  FORM STRENGTH: 0.125 MG; FORMULATION: TABLET
     Route: 048
  14. TYLENOL WITH CODEINE [Concomitant]
     Active Substance: ACETAMINOPHEN\CODEINE PHOSPHATE
     Indication: PAIN
     Dosage: 1-2 TABLS AS NEEDED;  FORM STRENGTH: 300-30MG; FORMULATION: TABLET
     Route: 048
  15. BRILINTA [Concomitant]
     Active Substance: TICAGRELOR
     Indication: ANTICOAGULANT THERAPY
     Dosage: 1 TAB BID;  FORM STRENGTH: 90MG; FORMULATION: TABLET
     Route: 048
  16. ATORVASTATIN [Concomitant]
     Active Substance: ATORVASTATIN
     Indication: BLOOD CHOLESTEROL INCREASED
     Dosage: 1 TAB DAILY;  FORM STRENGTH: 40MG; FORMULATION: TABLET
     Route: 048

REACTIONS (1)
  - Drug ineffective [Recovered/Resolved]

NARRATIVE: CASE EVENT DATE: 2015
